FAERS Safety Report 13827332 (Version 1)
Quarter: 2017Q3

REPORT INFORMATION
  Report Type: Spontaneous
  Country: US (occurrence: US)
  Receive Date: 20170802
  Receipt Date: 20170802
  Transmission Date: 20171127
  Serious: No
  Sender: FDA-Public Use
  Company Number: US-ROCHE-595391

PATIENT
  Age: 76 Year
  Sex: Female

DRUGS (9)
  1. AMINO ACIDS NOS [Concomitant]
     Active Substance: AMINO ACIDS
     Route: 065
  2. ESTROGEN [Concomitant]
     Active Substance: ESTROGENS
     Dosage: FORM: LOZENGER
     Route: 065
  3. VITAMINS NOS [Concomitant]
     Active Substance: VITAMINS
     Route: 065
  4. FISH OIL [Concomitant]
     Active Substance: FISH OIL
     Route: 065
  5. PROGESTERONE. [Concomitant]
     Active Substance: PROGESTERONE
     Dosage: FORM: LOZENGER
     Route: 065
  6. BI-EST [Concomitant]
     Dosage: FORM: LOZENGE.
     Route: 065
  7. MINERALS NOS [Concomitant]
     Active Substance: MINERALS
     Route: 065
  8. SELENIUM [Concomitant]
     Active Substance: SELENIUM
     Route: 065
  9. BONIVA [Suspect]
     Active Substance: IBANDRONATE SODIUM
     Indication: BONE DENSITY DECREASED
     Route: 048
     Dates: start: 200706, end: 200908

REACTIONS (9)
  - Wrong technique in product usage process [Unknown]
  - Dyspepsia [Recovering/Resolving]
  - Eating disorder [Recovering/Resolving]
  - Back pain [Not Recovered/Not Resolved]
  - Myalgia [Unknown]
  - Flatulence [Recovering/Resolving]
  - Eructation [Recovering/Resolving]
  - Arthritis [Unknown]
  - Infection [Unknown]

NARRATIVE: CASE EVENT DATE: 200901
